FAERS Safety Report 8182719-2 (Version None)
Quarter: 2012Q1

REPORT INFORMATION
  Report Type: 
  Country: None (occurrence: None)
  Receive Date: 20120305
  Receipt Date: 20120229
  Transmission Date: 20120608
  Serious: No
  Sender: FDA-Public Use
  Company Number: US-PFIZER INC-2012054552

PATIENT
  Sex: Female
  Weight: 88.435 kg

DRUGS (9)
  1. FLUOXETINE [Concomitant]
     Dosage: UNK
  2. ANASTROZOLE [Concomitant]
     Dosage: 1 MG, 1X/DAY
  3. BYSTOLIC [Concomitant]
     Dosage: 5 MG, 1X/DAY
  4. FLECTOR [Suspect]
     Indication: GOUT
     Dosage: UNK
     Route: 062
     Dates: start: 20120227
  5. MARCAINE [Suspect]
     Indication: GOUT
     Dosage: UNK
     Dates: start: 20120227, end: 20120227
  6. MULTI-VITAMINS [Concomitant]
     Dosage: UNK
  7. MESALAMINE [Concomitant]
     Dosage: UNK
  8. VITAMIN B COMPLEX CAP [Concomitant]
     Dosage: UNK
  9. LOSARTAN [Concomitant]
     Dosage: 12.5 MG, 1X/DAY

REACTIONS (1)
  - PAIN [None]
